FAERS Safety Report 9085570 (Version 2)
Quarter: 2013Q1

REPORT INFORMATION
  Report Type: Report from Study
  Country: SK (occurrence: SK)
  Receive Date: 20130131
  Receipt Date: 20130226
  Transmission Date: 20140127
  Serious: Yes (Hospitalization)
  Sender: FDA-Public Use
  Company Number: SK-ABBOTT-13P-260-1040117-00

PATIENT
  Age: 44 Year
  Sex: Male
  Weight: 87 kg

DRUGS (7)
  1. HUMIRA [Suspect]
     Indication: RHEUMATOID ARTHRITIS
     Route: 058
     Dates: start: 20120723, end: 20120917
  2. HUMIRA [Suspect]
     Route: 058
     Dates: start: 20121008, end: 20121022
  3. HUMIRA [Suspect]
     Route: 058
     Dates: start: 20121120
  4. METHOTREXAT [Concomitant]
     Indication: RHEUMATOID ARTHRITIS
     Route: 050
     Dates: start: 2011
  5. PREDNISON [Concomitant]
     Indication: RHEUMATOID ARTHRITIS
     Dates: start: 2008
  6. MEDOCLAV [Concomitant]
     Indication: PLEURISY
     Dates: start: 20120930, end: 20121012
  7. MEDOCIPRIN [Concomitant]
     Indication: PLEURISY
     Dates: start: 20120930, end: 20121012

REACTIONS (1)
  - Pleural disorder [Recovered/Resolved]
